FAERS Safety Report 21712504 (Version 1)
Quarter: 2022Q4

REPORT INFORMATION
  Report Type: Spontaneous
  Country: CA (occurrence: CA)
  Receive Date: 20221212
  Receipt Date: 20221212
  Transmission Date: 20230112
  Serious: Yes (Hospitalization, Other)
  Sender: FDA-Public Use
  Company Number: CA-SAMSUNG BIOEPIS-SB-2022-31011

PATIENT
  Age: 59 Year
  Sex: Female

DRUGS (1)
  1. INFLIXIMAB [Suspect]
     Active Substance: INFLIXIMAB
     Indication: Crohn^s disease
     Route: 042

REACTIONS (7)
  - Cough [Unknown]
  - Headache [Unknown]
  - Illness [Unknown]
  - Oropharyngeal pain [Unknown]
  - Rash [Unknown]
  - Respiratory tract infection [Unknown]
  - Off label use [Unknown]
